FAERS Safety Report 25164947 (Version 1)
Quarter: 2025Q2

REPORT INFORMATION
  Report Type: Report from Study
  Country: US (occurrence: US)
  Receive Date: 20250406
  Receipt Date: 20250406
  Transmission Date: 20250716
  Serious: Yes (Other)
  Sender: ORIENT PHARMA
  Company Number: US-Orient Pharma-000329

PATIENT
  Age: 48 Year
  Sex: Male

DRUGS (2)
  1. VANCOMYCIN [Suspect]
     Active Substance: VANCOMYCIN
     Indication: Product used for unknown indication
  2. LINEZOLID [Concomitant]
     Active Substance: LINEZOLID

REACTIONS (2)
  - Enterococcal infection [Unknown]
  - Osteomyelitis [Unknown]
